FAERS Safety Report 14499146 (Version 1)
Quarter: 2018Q1

REPORT INFORMATION
  Report Type: Spontaneous
  Country: US (occurrence: US)
  Receive Date: 20180207
  Receipt Date: 20180207
  Transmission Date: 20180509
  Serious: No
  Sender: FDA-Public Use
  Company Number: US-JAZZ-2017-US-001104

PATIENT
  Sex: Female

DRUGS (6)
  1. CLONIDINE. [Suspect]
     Active Substance: CLONIDINE
     Indication: PRODUCT USED FOR UNKNOWN INDICATION
     Dosage: 75.27 ?G, QD
     Route: 037
     Dates: start: 20161025
  2. PRIALT [Suspect]
     Active Substance: ZICONOTIDE ACETATE
     Indication: PRODUCT USED FOR UNKNOWN INDICATION
     Dosage: 0.139 ?G, QH
     Route: 037
     Dates: start: 20161025
  3. CLONIDINE. [Suspect]
     Active Substance: CLONIDINE
     Dosage: 75.27 ?G, QD
     Route: 037
     Dates: start: 20161101
  4. PRIALT [Suspect]
     Active Substance: ZICONOTIDE ACETATE
     Dosage: 0.139 ?G, QH
     Route: 037
     Dates: start: 20161101
  5. BUPIVACAINE. [Suspect]
     Active Substance: BUPIVACAINE
     Indication: PRODUCT USED FOR UNKNOWN INDICATION
     Dosage: 6.991 MG, QD
     Route: 037
     Dates: start: 20161025
  6. BUPIVACAINE. [Suspect]
     Active Substance: BUPIVACAINE
     Dosage: 6.991 MG, QD
     Route: 037
     Dates: start: 20161101

REACTIONS (1)
  - Sedation [Not Recovered/Not Resolved]
